FAERS Safety Report 13273177 (Version 1)
Quarter: 2017Q1

REPORT INFORMATION
  Report Type: Spontaneous
  Country: NO (occurrence: NO)
  Receive Date: 20170227
  Receipt Date: 20170227
  Transmission Date: 20170428
  Serious: Yes (Life-Threatening, Hospitalization)
  Sender: FDA-Public Use
  Company Number: NO-PFIZER INC-3211993

PATIENT
  Age: 56 Year
  Sex: Male

DRUGS (8)
  1. CEFOTAXIME [Suspect]
     Active Substance: CEFOTAXIME SODIUM
     Dosage: 2 G, ONCE EVERY 4 DAYS
     Dates: start: 20151007, end: 20151015
  2. LINEZOLID. [Suspect]
     Active Substance: LINEZOLID
     Indication: ENDOCARDITIS
     Dosage: 600 MG,  ONCE EVERY 2 DAYS
     Dates: start: 20151101, end: 20151112
  3. RIFAMPICIN [Suspect]
     Active Substance: RIFAMPIN
     Indication: ENDOCARDITIS
     Dosage: 300 MG, ONE ADDITIONAL DOSE GIVEN 23 OCT 2015
     Dates: start: 20150923, end: 20151015
  4. VANCOMYCIN HCL [Suspect]
     Active Substance: VANCOMYCIN HYDROCHLORIDE
     Indication: ENDOCARDITIS
     Dosage: 1.5 G X2 -0.75 G X 2
     Dates: start: 20150923, end: 20151101
  5. LIPITOR [Concomitant]
     Active Substance: ATORVASTATIN CALCIUM
     Dosage: 20 MG, FREQ: 1 DAY
  6. TRIATEC /00885601/ [Concomitant]
     Active Substance: RAMIPRIL
     Dosage: 2.5 MG, FREQ: 1 DAY
  7. ALBYL-E [Concomitant]
     Active Substance: ASPIRIN\MAGNESIUM OXIDE
     Dosage: 75 MG, FREQ: 1 DAY
  8. MAREVAN [Concomitant]
     Active Substance: WARFARIN SODIUM
     Dosage: UNK

REACTIONS (1)
  - Drug reaction with eosinophilia and systemic symptoms [Recovering/Resolving]

NARRATIVE: CASE EVENT DATE: 20151009
